FAERS Safety Report 18502633 (Version 2)
Quarter: 2020Q4

REPORT INFORMATION
  Report Type: Spontaneous
  Country: DE (occurrence: DE)
  Receive Date: 20201113
  Receipt Date: 20201116
  Transmission Date: 20210114
  Serious: Yes (Other)
  Sender: FDA-Public Use
  Company Number: DE-MALLINCKRODT-T202005345

PATIENT
  Age: 64 Year
  Sex: Male

DRUGS (1)
  1. UVADEX [Suspect]
     Active Substance: METHOXSALEN
     Indication: COMPLICATIONS OF TRANSPLANTED LUNG
     Dosage: UNK, WEEKLY (EXTRACORPOREAL)
     Route: 050

REACTIONS (3)
  - Eyelid tumour [Unknown]
  - Tumour excision [Unknown]
  - Product use in unapproved indication [Unknown]
